FAERS Safety Report 4736775-1 (Version None)
Quarter: 2005Q3

REPORT INFORMATION
  Report Type: 
  Country: None (occurrence: None)
  Receive Date: 20050808
  Receipt Date: 20050309
  Transmission Date: 20060218
  Serious: Yes (Hospitalization)
  Sender: FDA-Public Use
  Company Number: US-MERCK-0503USA01939

PATIENT
  Age: 80 Year
  Sex: Male
  Weight: 82 kg

DRUGS (6)
  1. VIOXX [Suspect]
     Indication: ARTHRITIS
     Route: 048
     Dates: start: 20020122, end: 20040701
  2. ZYRTEC [Concomitant]
     Route: 065
  3. ACETAMINOPHEN AND CODEINE [Concomitant]
     Route: 065
  4. AMOXICILLIN [Concomitant]
     Route: 065
  5. CLINDAMYCIN [Concomitant]
     Route: 065
  6. ACETAMINOPHEN AND HYDROCODONE BITARTRATE [Concomitant]
     Route: 065

REACTIONS (1)
  - EMBOLIC STROKE [None]
